FAERS Safety Report 23422976 (Version 1)
Quarter: 2024Q1

REPORT INFORMATION
  Report Type: Spontaneous
  Country: US (occurrence: None)
  Receive Date: 20240119
  Receipt Date: 20240119
  Transmission Date: 20240410
  Serious: Yes (Hospitalization)
  Sender: FDA-Public Use
  Company Number: None

PATIENT
  Sex: Female

DRUGS (1)
  1. BENEFIX [Suspect]
     Active Substance: COAGULATION FACTOR IX RECOMBINANT HUMAN\ISOPROPYL ALCOHOL
     Dosage: FREQUENCY : AS NEEDED;?
     Route: 042
     Dates: start: 202308

REACTIONS (3)
  - Maternal exposure timing unspecified [None]
  - Postpartum haemorrhage [None]
  - Nonspecific reaction [None]
